FAERS Safety Report 24540571 (Version 1)
Quarter: 2024Q4

REPORT INFORMATION
  Report Type: Spontaneous
  Country: FR (occurrence: FR)
  Receive Date: 20241023
  Receipt Date: 20241023
  Transmission Date: 20250115
  Serious: Yes (Congenital Anomaly)
  Sender: SANDOZ
  Company Number: FR-NOVPHSZ-PHHY2019FR053376

PATIENT
  Age: 8 Year

DRUGS (2)
  1. VALPROATE SODIUM [Suspect]
     Active Substance: VALPROATE SODIUM
     Indication: Foetal exposure during pregnancy
     Dosage: 1250 MG, QD, MOTHER DOSE: 1250 MG, QD
     Route: 064
  2. CLOBAZAM [Concomitant]
     Active Substance: CLOBAZAM
     Indication: Foetal exposure during pregnancy
     Dosage: UNK
     Route: 064

REACTIONS (4)
  - Balance disorder [Unknown]
  - Learning disorder [Unknown]
  - Nystagmus [Unknown]
  - Foetal exposure during pregnancy [Unknown]

NARRATIVE: CASE EVENT DATE: 20180101
